FAERS Safety Report 4421686-1 (Version None)
Quarter: 2004Q3

REPORT INFORMATION
  Report Type: 
  Country: None (occurrence: None)
  Receive Date: 20040806
  Receipt Date: 20040716
  Transmission Date: 20050211
  Serious: Yes (Hospitalization, Other)
  Sender: FDA-Public Use
  Company Number: US_0402100377

PATIENT
  Age: 81 Year
  Sex: Female
  Weight: 100 kg

DRUGS (1)
  1. HUMALOG [Suspect]
     Dosage: 45 U DAY

REACTIONS (9)
  - ARTERIAL OCCLUSIVE DISEASE [None]
  - BLOOD GLUCOSE FLUCTUATION [None]
  - CARPAL TUNNEL SYNDROME [None]
  - DEVICE FAILURE [None]
  - FIBROMYALGIA [None]
  - HYPOAESTHESIA [None]
  - OESOPHAGEAL HAEMORRHAGE [None]
  - SURGERY [None]
  - WEIGHT DECREASED [None]
